FAERS Safety Report 10665472 (Version 2)
Quarter: 2015Q2

REPORT INFORMATION
  Report Type: Report from Study
  Country: PK (occurrence: PK)
  Receive Date: 20141219
  Receipt Date: 20150421
  Transmission Date: 20150821
  Serious: Yes (Hospitalization, Other)
  Sender: FDA-Public Use
  Company Number: PHHY2014PK163265

PATIENT
  Age: 72 Year
  Sex: Female

DRUGS (1)
  1. EXELON PATCH [Suspect]
     Active Substance: RIVASTIGMINE
     Indication: DEMENTIA ALZHEIMER^S TYPE
     Dosage: 10 CM3, QD
     Route: 062
     Dates: start: 20140119, end: 20141103

REACTIONS (2)
  - Cerebral infarction [Recovered/Resolved]
  - Dementia [Recovered/Resolved]
